FAERS Safety Report 10433269 (Version 1)
Quarter: 2014Q3

REPORT INFORMATION
  Report Type: Spontaneous
  Country: US (occurrence: None)
  Receive Date: 20140904
  Receipt Date: 20140904
  Transmission Date: 20150326
  Serious: Yes (Other)
  Sender: FDA-Public Use
  Company Number: None

PATIENT
  Age: 78 Year
  Sex: Male
  Weight: 65.9 kg

DRUGS (26)
  1. ONDANSETRON [Concomitant]
     Active Substance: ONDANSETRON
  2. CALCIUM ACETATE. [Concomitant]
     Active Substance: CALCIUM ACETATE
  3. CALCIUM CARBONATE. [Concomitant]
     Active Substance: CALCIUM CARBONATE
  4. TAMSULOSIN [Concomitant]
     Active Substance: TAMSULOSIN
  5. FLUCONAZOLE. [Concomitant]
     Active Substance: FLUCONAZOLE
  6. ROSUVASTATIN [Concomitant]
     Active Substance: ROSUVASTATIN
  7. ASPIRIN. [Concomitant]
     Active Substance: ASPIRIN
  8. DIPHENHYDRAMINE [Concomitant]
     Active Substance: DIPHENHYDRAMINE
  9. LABETALOL [Concomitant]
     Active Substance: LABETALOL\LABETALOL HYDROCHLORIDE
  10. PANTOPRAZOLE [Concomitant]
     Active Substance: PANTOPRAZOLE SODIUM
  11. VANCOMYCIN [Concomitant]
     Active Substance: VANCOMYCIN
  12. CEFEPIME [Suspect]
     Active Substance: CEFEPIME\CEFEPIME HYDROCHLORIDE
     Indication: OSTEOMYELITIS
     Dosage: 2G, TUTHSAT IV
     Route: 042
     Dates: start: 20140611, end: 20140621
  13. HEPARIN [Concomitant]
     Active Substance: HEPARIN SODIUM
  14. EPOETIN ALFA [Concomitant]
     Active Substance: ERYTHROPOIETIN
  15. AMLODIPINE [Concomitant]
     Active Substance: AMLODIPINE BESYLATE
  16. CARVEDILOL. [Concomitant]
     Active Substance: CARVEDILOL
  17. ERGOCALCIFEROL. [Concomitant]
     Active Substance: ERGOCALCIFEROL
  18. FENTANYL. [Concomitant]
     Active Substance: FENTANYL
  19. HYDROMORPHONE [Concomitant]
     Active Substance: HYDROMORPHONE
  20. ACETAMINOPHEN. [Concomitant]
     Active Substance: ACETAMINOPHEN
  21. ALBUMIN [Concomitant]
     Active Substance: ALBUMIN (HUMAN)
  22. HYDROCODONE/ACETAMINOPHEN [Concomitant]
     Active Substance: ACETAMINOPHEN\HYDROCODONE
  23. HYDRALAZINE [Concomitant]
     Active Substance: HYDRALAZINE HYDROCHLORIDE
  24. LORAZEPAM. [Concomitant]
     Active Substance: LORAZEPAM
  25. MORPHINE [Concomitant]
     Active Substance: MORPHINE
  26. LEVETIRACETAM. [Concomitant]
     Active Substance: LEVETIRACETAM

REACTIONS (4)
  - Sepsis [None]
  - Toxic encephalopathy [None]
  - Restlessness [None]
  - Blood potassium increased [None]

NARRATIVE: CASE EVENT DATE: 20140623
